FAERS Safety Report 17253299 (Version 2)
Quarter: 2020Q2

REPORT INFORMATION
  Report Type: Spontaneous
  Country: US (occurrence: US)
  Receive Date: 20200109
  Receipt Date: 20200527
  Transmission Date: 20200713
  Serious: No
  Sender: FDA-Public Use
  Company Number: US-ELI_LILLY_AND_COMPANY-US201912011905

PATIENT
  Age: 68 Year
  Sex: Male
  Weight: 173 kg

DRUGS (1)
  1. EMGALITY [Suspect]
     Active Substance: GALCANEZUMAB-GNLM
     Indication: CLUSTER HEADACHE
     Dosage: 300 MG, MONTHLY (1/M)
     Route: 058
     Dates: start: 20191031, end: 20191205

REACTIONS (1)
  - Hypertension [Recovered/Resolved]
